FAERS Safety Report 13600858 (Version 1)
Quarter: 2017Q2

REPORT INFORMATION
  Report Type: Spontaneous
  Country: US (occurrence: US)
  Receive Date: 20170531
  Receipt Date: 20170531
  Transmission Date: 20170830
  Serious: Yes (Death, Hospitalization)
  Sender: FDA-Public Use
  Company Number: None

PATIENT
  Age: 76 Year
  Sex: Female

DRUGS (4)
  1. TARCEVA [Suspect]
     Active Substance: ERLOTINIB HYDROCHLORIDE
     Indication: LUNG NEOPLASM MALIGNANT
     Route: 048
     Dates: start: 20160809, end: 20170529
  2. TARCEVA [Suspect]
     Active Substance: ERLOTINIB HYDROCHLORIDE
     Indication: CHOLANGIOCARCINOMA
     Route: 048
     Dates: start: 20160809, end: 20170529
  3. SENNA [Concomitant]
     Active Substance: SENNA LEAF\SENNOSIDES\SENNOSIDES A AND B
  4. MAPAP [Concomitant]
     Active Substance: ACETAMINOPHEN

REACTIONS (5)
  - Respiratory failure [None]
  - Disease complication [None]
  - Urosepsis [None]
  - Lung neoplasm malignant [None]
  - Condition aggravated [None]

NARRATIVE: CASE EVENT DATE: 20170507
